FAERS Safety Report 6646943-X (Version None)
Quarter: 2010Q1

REPORT INFORMATION
  Report Type: 
  Country: None (occurrence: None)
  Receive Date: 20100323
  Receipt Date: 20100312
  Transmission Date: 20100710
  Serious: Yes (Other)
  Sender: FDA-Public Use
  Company Number: CN-BAXTER-2010BH007153

PATIENT

DRUGS (1)
  1. LACTATED RINGER'S [Suspect]
     Indication: DRUG USE FOR UNKNOWN INDICATION
     Route: 065

REACTIONS (7)
  - CHEST PAIN [None]
  - CHILLS [None]
  - CONFUSIONAL STATE [None]
  - HAEMATURIA [None]
  - PALLOR [None]
  - PYREXIA [None]
  - RASH [None]
